FAERS Safety Report 9229475 (Version 3)
Quarter: 2013Q3

REPORT INFORMATION
  Report Type: Spontaneous
  Country: US (occurrence: US)
  Receive Date: 20130412
  Receipt Date: 20130918
  Transmission Date: 20140515
  Serious: Yes (Death, Hospitalization, Other)
  Sender: FDA-Public Use
  Company Number: US-ASTELLAS-2013US001338

PATIENT
  Age: 54 Year
  Sex: Female
  Weight: 41 kg

DRUGS (2)
  1. PROGRAF [Suspect]
     Indication: RENAL TRANSPLANT
     Dosage: 3 MG, BID
     Route: 048
     Dates: start: 20110804, end: 20130710
  2. PROGRAF [Suspect]
     Indication: PANCREAS TRANSPLANT

REACTIONS (20)
  - Off label use [Unknown]
  - Acute respiratory distress syndrome [Fatal]
  - Toxicity to various agents [Unknown]
  - Renal transplant failure [Unknown]
  - Anaemia [Unknown]
  - Polyomavirus-associated nephropathy [Unknown]
  - Cytomegalovirus viraemia [Unknown]
  - Enterococcal infection [Unknown]
  - Clostridium difficile infection [Unknown]
  - Escherichia urinary tract infection [Unknown]
  - Myocardial ischaemia [Unknown]
  - Cytomegalovirus gastritis [Unknown]
  - Chronic gastrointestinal bleeding [Unknown]
  - Pneumocystis jirovecii pneumonia [Fatal]
  - Aspergillus infection [Fatal]
  - Dizziness [Unknown]
  - Nausea [Unknown]
  - Fatigue [Unknown]
  - Decreased appetite [Unknown]
  - Cough [Unknown]
